FAERS Safety Report 18166427 (Version 3)
Quarter: 2020Q3

REPORT INFORMATION
  Report Type: Spontaneous
  Country: US (occurrence: US)
  Receive Date: 20200819
  Receipt Date: 20200924
  Transmission Date: 20201103
  Serious: Yes (Hospitalization, Other)
  Sender: FDA-Public Use
  Company Number: US-VISTAPHARM, INC.-VER202008-001394

PATIENT
  Age: 34 Year
  Sex: Female

DRUGS (12)
  1. PREDNISONE. [Suspect]
     Active Substance: PREDNISONE
     Dosage: 60 MG DAILY
  2. IMMUNOGLOBULIN (IMMUNOGLOBULIN NOS) [Suspect]
     Active Substance: IMMUNE GLOBULIN NOS
     Dosage: MONTHLY
     Route: 042
  3. OFATUMUMAB [Concomitant]
     Active Substance: OFATUMUMAB
     Indication: PEMPHIGUS
     Dosage: UNKNOWN
  4. DOXYCYCLINE. [Concomitant]
     Active Substance: DOXYCYCLINE
     Indication: PEMPHIGUS
     Dosage: UNKNOWN
  5. PREDNISONE. [Suspect]
     Active Substance: PREDNISONE
     Dosage: TAPERED BELOW 20 MG
  6. PREDNISONE. [Suspect]
     Active Substance: PREDNISONE
     Indication: PEMPHIGUS
     Dosage: 30 MG DAILY
  7. METHYLPREDNISOLONE. [Suspect]
     Active Substance: METHYLPREDNISOLONE
     Indication: PEMPHIGUS
     Dosage: 1 MG/KG FOR 3 DAYS
  8. METHOTREXATE. [Concomitant]
     Active Substance: METHOTREXATE
     Indication: PEMPHIGUS
     Dosage: UNKNOWN
  9. IMMUNOGLOBULIN (IMMUNOGLOBULIN NOS) [Suspect]
     Active Substance: IMMUNE GLOBULIN NOS
     Dosage: EVERY 3 WEEKS
  10. RITUXIMAB. [Concomitant]
     Active Substance: RITUXIMAB
     Indication: PEMPHIGUS
     Dosage: UNKNOWN
  11. MYCOPHENOLATE MOFETIL ORAL SUSPENSION, USP  200 MG/ML [Suspect]
     Active Substance: MYCOPHENOLATE MOFETIL
     Indication: PEMPHIGUS
     Dosage: 1500 MG TWICE DAILY
  12. IMMUNOGLOBULIN (IMMUNOGLOBULIN NOS) [Suspect]
     Active Substance: IMMUNE GLOBULIN NOS
     Indication: PEMPHIGUS
     Dosage: UNKNOWN
     Route: 042

REACTIONS (5)
  - Oedema peripheral [Unknown]
  - Drug ineffective for unapproved indication [Unknown]
  - Pulmonary embolism [Unknown]
  - Exposure during pregnancy [Unknown]
  - Tachycardia [Unknown]
